FAERS Safety Report 8617217-2 (Version None)
Quarter: 2012Q3

REPORT INFORMATION
  Report Type: 
  Country: None (occurrence: None)
  Receive Date: 20120823
  Receipt Date: 20120822
  Transmission Date: 20120928
  Serious: Yes (Congenital Anomaly)
  Sender: FDA-Public Use
  Company Number: CHPA2012DE017964

PATIENT
  Sex: Male
  Weight: 3.87 kg

DRUGS (6)
  1. CETIRIZINE [Suspect]
     Dosage: MATERNAL DOSE: 10 MG/D
     Route: 064
     Dates: start: 20110308, end: 20110428
  2. AMOXICILLIN AND CLAVULANATE POTASSIUM [Concomitant]
     Dosage: MATERNAL DOSE: 375 MG/D OR 1500 MG/D
     Route: 064
     Dates: start: 20110420, end: 20110427
  3. INSULIN [Concomitant]
     Dosage: MATERNAL DOSE: UNK
     Route: 064
  4. FEMIBION [Concomitant]
     Dosage: MATERNAL DOSE: 0.4 MG/D
     Route: 064
  5. OTRIVIN [Suspect]
     Dosage: MATERNAL DOSE: UNK
     Route: 064
     Dates: start: 20110308, end: 20111214
  6. DIPHTHERIA AND TETANUS VACCINE [Concomitant]
     Dosage: MATERNAL DOSE: 1 DF, ONCE
     Route: 064
     Dates: start: 20110421, end: 20110421

REACTIONS (2)
  - ANAL ATRESIA [None]
  - FOETAL EXPOSURE DURING PREGNANCY [None]
